FAERS Safety Report 8807310 (Version 1)
Quarter: 2012Q4

REPORT INFORMATION
  Report Type: 
  Country: US (occurrence: US)
  Receive Date: 20120925
  Receipt Date: 20120925
  Transmission Date: 20130627
  Serious: Yes (Hospitalization)
  Sender: FDA-Public Use
  Company Number: US-ARROW-2012-16470

PATIENT
  Age: 59 Year
  Sex: Male

DRUGS (3)
  1. ALPRAZOLAM (UNKNOWN) [Suspect]
     Indication: PRODUCT USED FOR UNKNOWN INDICATION
     Route: 065
  2. FENTANYL (UNKNOWN) [Suspect]
     Indication: PRODUCT USED FOR UNKNOWN INDICATION
     Route: 065
  3. ETHANOL [Suspect]
     Indication: PRODUCT USED FOR UNKNOWN INDICATION
     Route: 065

REACTIONS (16)
  - Leukoencephalopathy [Recovering/Resolving]
  - Myocardial infarction [Recovered/Resolved]
  - Renal failure acute [Recovered/Resolved]
  - Respiratory acidosis [Recovered/Resolved]
  - Pneumonia aspiration [Recovered/Resolved]
  - Rhabdomyolysis [Recovered/Resolved]
  - Respiratory rate decreased [Recovered/Resolved]
  - Overdose [Recovering/Resolving]
  - Agitation [None]
  - Memory impairment [None]
  - Speech disorder [None]
  - Dysarthria [None]
  - Cognitive disorder [None]
  - Overdose [None]
  - Unresponsive to stimuli [None]
  - Haemodialysis [None]
